FAERS Safety Report 9443615 (Version 3)
Quarter: 2014Q1

REPORT INFORMATION
  Report Type: Report from Study
  Country: US (occurrence: US)
  Receive Date: 20130806
  Receipt Date: 20140303
  Transmission Date: 20141002
  Serious: Yes (Hospitalization, Other)
  Sender: FDA-Public Use
  Company Number: US-PURDUE-USA-2013-0105065

PATIENT
  Age: 50 Year
  Sex: Male

DRUGS (4)
  1. OXYCONTIN (NDA 22-272) [Suspect]
     Indication: PANCREATIC CARCINOMA
     Dosage: 80 MG, Q12H
     Route: 048
     Dates: start: 20120618
  2. OXYCONTIN (NDA 22-272) [Suspect]
     Dosage: 30 MG, Q4H
     Route: 048
  3. ROXICODONE [Concomitant]
     Indication: BREAKTHROUGH PAIN
     Dosage: 15 MG, UNK
     Route: 048
     Dates: start: 20100202, end: 20130217
  4. ROXICODONE [Concomitant]
     Dosage: 30 MG, UNK
     Route: 048
     Dates: start: 20100217

REACTIONS (2)
  - Pancreatic carcinoma [Not Recovered/Not Resolved]
  - Pain [Unknown]
